FAERS Safety Report 16462016 (Version 1)
Quarter: 2019Q2

REPORT INFORMATION
  Report Type: Spontaneous
  Country: CA (occurrence: CA)
  Receive Date: 20190621
  Receipt Date: 20190621
  Transmission Date: 20190711
  Serious: Yes (Hospitalization, Other)
  Sender: FDA-Public Use
  Company Number: CA-TEVA-2019-CA-1066258

PATIENT
  Age: 7 Year
  Sex: Male

DRUGS (2)
  1. VALPROIC ACID. [Suspect]
     Active Substance: VALPROIC ACID
     Dosage: 1 GRAM DAILY;
     Route: 065
  2. VALPROIC ACID. [Suspect]
     Active Substance: VALPROIC ACID
     Indication: PETIT MAL EPILEPSY
     Dosage: 750 MILLIGRAM DAILY;
     Route: 065

REACTIONS (7)
  - Parotid gland enlargement [Recovered/Resolved]
  - Dacryoadenitis acquired [Recovered/Resolved]
  - Discomfort [Recovered/Resolved]
  - Lacrimal gland enlargement [Recovered/Resolved]
  - Conjunctival oedema [Recovered/Resolved]
  - Eyelid oedema [Recovered/Resolved]
  - Salivary gland enlargement [Recovered/Resolved]
